FAERS Safety Report 14142264 (Version 1)
Quarter: 2017Q4

REPORT INFORMATION
  Report Type: Report from Study
  Country: US (occurrence: US)
  Receive Date: 20171030
  Receipt Date: 20171030
  Transmission Date: 20180321
  Serious: No
  Sender: FDA-Public Use
  Company Number: US-IPSEN BIOPHARMACEUTICALS, INC.-2016-11498

PATIENT
  Age: 10 Year
  Sex: Male
  Weight: 7.9 kg

DRUGS (1)
  1. INCRELEX [Suspect]
     Active Substance: MECASERMIN
     Indication: PRIMARY INSULIN LIKE GROWTH FACTOR-1 DEFICIENCY
     Route: 058
     Dates: start: 201612

REACTIONS (1)
  - Injection related reaction [Recovered/Resolved]

NARRATIVE: CASE EVENT DATE: 201612
